FAERS Safety Report 5626571-5 (Version None)
Quarter: 2008Q1

REPORT INFORMATION
  Report Type: 
  Country: None (occurrence: None)
  Receive Date: 20080212
  Receipt Date: 20080201
  Transmission Date: 20080703
  Serious: Yes (Other)
  Sender: FDA-Public Use
  Company Number: 2007337918

PATIENT
  Age: 76 Year
  Sex: Female

DRUGS (3)
  1. ZYRTEC [Suspect]
     Indication: HYPERSENSITIVITY
     Dosage: 10 MG (10 MG, 1 IN 1 D), ORAL
     Route: 048
  2. ANTIVERT ^PFIZER^ (MECLOZINE HYDROCHLORIDE) [Suspect]
     Indication: MENIERE'S DISEASE
     Dosage: UNSPECIFIED
  3. ALL OTHER THERAEPUTIC PRODUCTS (ALL OTHER THERAPEUTIC PRODUCTS) [Concomitant]

REACTIONS (6)
  - HERNIA [None]
  - HYPOACUSIS [None]
  - LIPOMA [None]
  - MIDDLE EAR EFFUSION [None]
  - OTORRHOEA [None]
  - SEASONAL ALLERGY [None]
